FAERS Safety Report 5978443-4 (Version None)
Quarter: 2008Q4

REPORT INFORMATION
  Report Type: 
  Country: None (occurrence: None)
  Receive Date: 20081204
  Receipt Date: 20081124
  Transmission Date: 20090506
  Serious: Yes (Hospitalization)
  Sender: FDA-Public Use
  Company Number: FR-JNJFOC-20080803989

PATIENT
  Age: 44 Year
  Sex: Male
  Weight: 72 kg

DRUGS (4)
  1. REMICADE [Suspect]
     Indication: ANKYLOSING SPONDYLITIS
     Dosage: RECEIVED 2 INFUSIONS
     Route: 042
  2. FELDENE [Concomitant]
     Indication: MUSCULOSKELETAL PAIN
  3. IXPRIM [Concomitant]
     Indication: MUSCULOSKELETAL PAIN
  4. ACETAMINOPHEN [Concomitant]
     Indication: MUSCULOSKELETAL PAIN

REACTIONS (1)
  - PULMONARY ALVEOLAR HAEMORRHAGE [None]
